FAERS Safety Report 18179586 (Version 1)
Quarter: 2020Q3

REPORT INFORMATION
  Report Type: Spontaneous
  Country: US (occurrence: US)
  Receive Date: 20200820
  Receipt Date: 20200820
  Transmission Date: 20201103
  Serious: Yes (Disabling)
  Sender: FDA-Public Use
  Company Number: None

PATIENT
  Age: 69 Year
  Sex: Female
  Weight: 62.1 kg

DRUGS (5)
  1. VITAMIN D3 [Concomitant]
     Active Substance: CHOLECALCIFEROL
  2. TURMERIC [Concomitant]
     Active Substance: HERBALS\TURMERIC
  3. WELCHOL [Concomitant]
     Active Substance: COLESEVELAM HYDROCHLORIDE
  4. CYMBALTA [Suspect]
     Active Substance: DULOXETINE HYDROCHLORIDE
     Indication: FIBROMYALGIA
     Dosage: ?          QUANTITY:1 CAPSULE(S);?
     Route: 048
     Dates: start: 20191111, end: 20200806
  5. FISH OIL [Concomitant]
     Active Substance: FISH OIL

REACTIONS (10)
  - Dizziness [None]
  - Fatigue [None]
  - Vertigo [None]
  - Myalgia [None]
  - Decreased appetite [None]
  - Nausea [None]
  - Diarrhoea [None]
  - Influenza like illness [None]
  - Withdrawal syndrome [None]
  - Chills [None]

NARRATIVE: CASE EVENT DATE: 20200806
